FAERS Safety Report 4754898-8 (Version None)
Quarter: 2005Q3

REPORT INFORMATION
  Report Type: 
  Country: None (occurrence: None)
  Receive Date: 20050829
  Receipt Date: 20050822
  Transmission Date: 20060218
  Serious: Yes (Hospitalization)
  Sender: FDA-Public Use
  Company Number: US-MERCK-0508USA03614

PATIENT
  Age: 53 Year
  Sex: Female

DRUGS (5)
  1. VIOXX [Suspect]
     Indication: ARTHRALGIA
     Route: 048
     Dates: start: 19970101, end: 20050701
  2. PREVACID [Concomitant]
     Route: 065
  3. PROZAC [Concomitant]
     Route: 065
  4. FLEXERIL [Concomitant]
     Route: 065
  5. ULTRACET [Concomitant]
     Route: 065

REACTIONS (1)
  - MYOCARDIAL INFARCTION [None]
